FAERS Safety Report 4638757-7 (Version None)
Quarter: 2005Q2

REPORT INFORMATION
  Report Type: 
  Country: None (occurrence: None)
  Receive Date: 20050418
  Receipt Date: 20050418
  Transmission Date: 20051028
  Serious: No
  Sender: FDA-Public Use
  Company Number: None

PATIENT
  Age: 18 Year
  Sex: Female
  Weight: 87.27 kg

DRUGS (3)
  1. IBUPROFEN [Suspect]
     Indication: CAESAREAN SECTION
     Dosage: 600 MG   Q6HPRN    PO
     Route: 048
     Dates: start: 20050224, end: 20050225
  2. IBUPROFEN [Suspect]
     Indication: POST PROCEDURAL PAIN
     Dosage: 600 MG   Q6HPRN    PO
     Route: 048
     Dates: start: 20050224, end: 20050225
  3. OXYCODONE AND ACETAMINOPHEN [Concomitant]

REACTIONS (1)
  - SWELLING FACE [None]
